FAERS Safety Report 5642252-6 (Version None)
Quarter: 2008Q1

REPORT INFORMATION
  Report Type: 
  Country: None (occurrence: None)
  Receive Date: 20080225
  Receipt Date: 20080211
  Transmission Date: 20080703
  Serious: Yes (Hospitalization)
  Sender: FDA-Public Use
  Company Number: 2008-00227

PATIENT
  Age: 51 Year
  Sex: Female

DRUGS (2)
  1. NORCO [Suspect]
     Indication: DRUG USE FOR UNKNOWN INDICATION
     Dosage: ORAL
     Route: 048
  2. UNKNOWN DRUGS(UNKNOWN) UNKNOWN [Suspect]
     Indication: DRUG USE FOR UNKNOWN INDICATION

REACTIONS (2)
  - ALCOHOLISM [None]
  - MULTIPLE DRUG OVERDOSE [None]
